FAERS Safety Report 9315514 (Version 1)
Quarter: 2013Q2

REPORT INFORMATION
  Report Type: Report from Study
  Country: FR (occurrence: FR)
  Receive Date: 20130529
  Receipt Date: 20130529
  Transmission Date: 20140414
  Serious: Yes (Other)
  Sender: FDA-Public Use
  Company Number: FR-009507513-1305FRA013649

PATIENT
  Age: 44 Year
  Sex: Female

DRUGS (1)
  1. NORFLOXACIN [Suspect]
     Route: 048

REACTIONS (1)
  - Type III immune complex mediated reaction [Unknown]
